FAERS Safety Report 9347751 (Version 3)
Quarter: 2013Q3

REPORT INFORMATION
  Report Type: Spontaneous
  Country: US (occurrence: US)
  Receive Date: 20130614
  Receipt Date: 20130716
  Transmission Date: 20140515
  Serious: No
  Sender: FDA-Public Use
  Company Number: US-PFIZER INC-2013174219

PATIENT
  Age: 49 Year
  Sex: Female
  Weight: 68.03 kg

DRUGS (8)
  1. SUTENT [Suspect]
     Indication: GASTROINTESTINAL STROMAL TUMOUR
     Dosage: 25 MG, 1X/DAY
     Dates: start: 20130425
  2. SUTENT [Suspect]
     Dosage: 25 MG, 1X/DAY
     Route: 048
  3. GLEEVEC [Suspect]
     Indication: GASTROINTESTINAL STROMAL TUMOUR
     Dosage: 400 MG, 1X/DAY
     Dates: end: 201208
  4. GLEEVEC [Suspect]
     Dosage: 400 MG, 2X/DAY
  5. VITAMIN D [Concomitant]
     Dosage: UNK
  6. VITAMIN D [Concomitant]
     Dosage: UNK
  7. VITAMIN B12 [Concomitant]
     Dosage: UNK
  8. VITAMIN B12 [Concomitant]
     Dosage: UNK

REACTIONS (8)
  - Abdominal distension [Unknown]
  - Pain in extremity [Unknown]
  - Pruritus [Unknown]
  - Diarrhoea [Unknown]
  - Hypoaesthesia [Unknown]
  - Hypoaesthesia oral [Unknown]
  - Nausea [Unknown]
  - Diarrhoea [Unknown]
